FAERS Safety Report 13050849 (Version 2)
Quarter: 2017Q1

REPORT INFORMATION
  Report Type: Spontaneous
  Country: US (occurrence: US)
  Receive Date: 20161221
  Receipt Date: 20170202
  Transmission Date: 20170428
  Serious: Yes (Hospitalization, Disabling, Other)
  Sender: FDA-Public Use
  Company Number: US-SAOL THERAPEUTICS-2016SAO01257

PATIENT
  Age: 71 Year
  Sex: Male

DRUGS (4)
  1. LIORESAL [Suspect]
     Active Substance: BACLOFEN
     Indication: CEREBROVASCULAR ACCIDENT
     Dosage: 50 ?G, \DAY
     Route: 037
     Dates: start: 20080819
  2. LIORESAL [Suspect]
     Active Substance: BACLOFEN
     Indication: HEMIPARESIS
  3. LIORESAL [Suspect]
     Active Substance: BACLOFEN
     Indication: CEREBROVASCULAR ACCIDENT
     Dosage: 1000.2 ?G, \DAY
     Route: 037
     Dates: start: 20150409, end: 20150507
  4. LIORESAL [Suspect]
     Active Substance: BACLOFEN
     Indication: MUSCLE SPASTICITY

REACTIONS (9)
  - Insomnia [Not Recovered/Not Resolved]
  - Implant site infection [Unknown]
  - Joint range of motion decreased [Unknown]
  - Activities of daily living impaired [Not Recovered/Not Resolved]
  - Muscle contractions involuntary [Unknown]
  - Gait disturbance [Not Recovered/Not Resolved]
  - Muscle spasticity [Not Recovered/Not Resolved]
  - Impaired healing [Unknown]
  - Somnolence [Not Recovered/Not Resolved]

NARRATIVE: CASE EVENT DATE: 20150507
